FAERS Safety Report 11597100 (Version 1)
Quarter: 2015Q4

REPORT INFORMATION
  Report Type: Spontaneous
  Country: US (occurrence: None)
  Receive Date: 20151005
  Receipt Date: 20151005
  Transmission Date: 20160304
  Serious: Yes (Other)
  Sender: FDA-Public Use
  Company Number: None

PATIENT
  Age: 10 Year
  Sex: Male
  Weight: 44.45 kg

DRUGS (1)
  1. TAMIFLU [Suspect]
     Active Substance: OSELTAMIVIR PHOSPHATE
     Indication: HYPERPYREXIA
     Route: 048
     Dates: start: 20151002, end: 20151002

REACTIONS (3)
  - Abnormal behaviour [None]
  - Nightmare [None]
  - Hallucination [None]

NARRATIVE: CASE EVENT DATE: 20151002
